FAERS Safety Report 16087186 (Version 1)
Quarter: 2019Q1

REPORT INFORMATION
  Report Type: Spontaneous
  Country: US (occurrence: US)
  Receive Date: 20190319
  Receipt Date: 20190319
  Transmission Date: 20190418
  Serious: No
  Sender: FDA-Public Use
  Company Number: US-AMGEN INC.-USASP2019041203

PATIENT
  Age: 52 Year
  Sex: Female

DRUGS (3)
  1. MIRALAX [Concomitant]
     Active Substance: POLYETHYLENE GLYCOL 3350
  2. AIMOVIG [Suspect]
     Active Substance: ERENUMAB-AOOE
     Indication: MIGRAINE
     Dosage: UNK
     Route: 065
     Dates: start: 2018
  3. DILAUDID [Concomitant]
     Active Substance: HYDROMORPHONE HYDROCHLORIDE
     Dosage: UNK UNK, BID

REACTIONS (1)
  - Constipation [Not Recovered/Not Resolved]

NARRATIVE: CASE EVENT DATE: 2018
